FAERS Safety Report 24771750 (Version 1)
Quarter: 2024Q4

REPORT INFORMATION
  Report Type: Spontaneous
  Country: JP (occurrence: JP)
  Receive Date: 20241224
  Receipt Date: 20241224
  Transmission Date: 20250115
  Serious: Yes (Hospitalization)
  Sender: SANDOZ
  Company Number: JP-MLMSERVICE-20241211-PI295569-00336-1

PATIENT
  Age: 20 Month
  Sex: Male

DRUGS (1)
  1. ZOLEDRONIC ACID [Suspect]
     Active Substance: ZOLEDRONIC ACID
     Indication: Langerhans^ cell histiocytosis
     Dosage: 1.000 MG
     Route: 042

REACTIONS (1)
  - Tooth development disorder [Unknown]
